FAERS Safety Report 21631360 (Version 1)
Quarter: 2022Q4

REPORT INFORMATION
  Report Type: Spontaneous
  Country: JP (occurrence: JP)
  Receive Date: 20221123
  Receipt Date: 20221123
  Transmission Date: 20230113
  Serious: Yes (Life-Threatening, Hospitalization, Other)
  Sender: FDA-Public Use
  Company Number: JP-AUROBINDO-AUR-APL-2022-049468

PATIENT
  Age: 85 Year
  Sex: Female
  Weight: 42 kg

DRUGS (8)
  1. FOLOTYN [Suspect]
     Active Substance: PRALATREXATE
     Indication: Angioimmunoblastic T-cell lymphoma stage III
     Dosage: 20 MILLIGRAM/SQ. METER, EVERY WEEK
     Route: 042
     Dates: start: 20210729, end: 20210729
  2. FOLOTYN [Suspect]
     Active Substance: PRALATREXATE
     Dosage: 15 MILLIGRAM/SQ. METER, EVERY WEEK
     Route: 042
     Dates: start: 20210812, end: 20210902
  3. FOLOTYN [Suspect]
     Active Substance: PRALATREXATE
     Dosage: 15 MILLIGRAM/SQ. METER, EVERY WEEK
     Route: 042
     Dates: start: 20210819
  4. FOLOTYN [Suspect]
     Active Substance: PRALATREXATE
     Dosage: 15 MILLIGRAM/SQ. METER, EVERY WEEK
     Route: 042
     Dates: start: 20210826
  5. FOLOTYN [Suspect]
     Active Substance: PRALATREXATE
     Dosage: 15 MILLIGRAM/SQ. METER, EVERY WEEK
     Route: 042
     Dates: start: 20210902
  6. FOLOTYN [Suspect]
     Active Substance: PRALATREXATE
     Dosage: 15 MILLIGRAM/SQ. METER, EVERY WEEK
     Route: 042
     Dates: start: 20211008, end: 20211015
  7. FOLIC ACID [Concomitant]
     Active Substance: FOLIC ACID
     Indication: Product used for unknown indication
     Dosage: UNK
     Route: 065
     Dates: start: 20210727
  8. VITAMIN B12 [Concomitant]
     Active Substance: CYANOCOBALAMIN
     Indication: Product used for unknown indication
     Dosage: UNK
     Route: 065
     Dates: start: 20210727

REACTIONS (3)
  - Myelosuppression [Recovering/Resolving]
  - Stomatitis [Recovered/Resolved]
  - Pneumonia [Recovered/Resolved]

NARRATIVE: CASE EVENT DATE: 20210803
